FAERS Safety Report 23870025 (Version 2)
Quarter: 2025Q3

REPORT INFORMATION
  Report Type: Spontaneous
  Country: US (occurrence: US)
  Receive Date: 20240517
  Receipt Date: 20250813
  Transmission Date: 20251020
  Serious: No
  Sender: SANOFI AVENTIS
  Company Number: US-SA-SAC20240509000313

PATIENT
  Age: 67 Year
  Sex: Female

DRUGS (1)
  1. DUPIXENT [Suspect]
     Active Substance: DUPILUMAB
     Indication: Pruritus
     Dosage: 300 MG, QOW
     Route: 058

REACTIONS (5)
  - Rash pruritic [Unknown]
  - Therapeutic response decreased [Unknown]
  - Pruritus [Recovered/Resolved]
  - Rebound effect [Recovered/Resolved]
  - Product use in unapproved indication [Unknown]
